FAERS Safety Report 7060695-3 (Version None)
Quarter: 2010Q4

REPORT INFORMATION
  Report Type: 
  Country: None (occurrence: None)
  Receive Date: 20101025
  Receipt Date: 20101014
  Transmission Date: 20110411
  Serious: Yes (Life-Threatening, Other)
  Sender: FDA-Public Use
  Company Number: AT-ROCHE-734020

PATIENT
  Sex: Male

DRUGS (1)
  1. ROACTEMRA [Suspect]
     Indication: RHEUMATOID ARTHRITIS
     Route: 042
     Dates: start: 20090501, end: 20100901

REACTIONS (4)
  - ANASTOMOTIC COMPLICATION [None]
  - MYOCARDIAL INFARCTION [None]
  - PERITONITIS [None]
  - SMALL INTESTINAL PERFORATION [None]
